FAERS Safety Report 7650862-X (Version None)
Quarter: 2011Q3

REPORT INFORMATION
  Report Type: 
  Country: None (occurrence: None)
  Receive Date: 20110802
  Receipt Date: 20110725
  Transmission Date: 20111222
  Serious: Yes (Other)
  Sender: FDA-Public Use
  Company Number: JP-PFIZER INC-2011065029

PATIENT
  Age: 71 Year
  Sex: Male

DRUGS (4)
  1. TRIHEXYPHENIDYL [Concomitant]
  2. PROPRANOLOL [Concomitant]
     Dosage: 20 MG/DAY
  3. CABERGOLINE [Suspect]
     Indication: PARKINSON'S DISEASE
     Dosage: 2 MG/DAY
     Route: 048
     Dates: start: 20060101
  4. CARBIDOPA [Concomitant]
     Dosage: 300 MG/DAY

REACTIONS (2)
  - PLEURAL EFFUSION [None]
  - INTERSTITIAL LUNG DISEASE [None]
